FAERS Safety Report 20615264 (Version 2)
Quarter: 2022Q1

REPORT INFORMATION
  Report Type: Spontaneous
  Country: US (occurrence: US)
  Receive Date: 20220321
  Receipt Date: 20220330
  Transmission Date: 20220423
  Serious: No
  Sender: FDA-Public Use
  Company Number: US-AIMMUNE THERAPEUTICS, INC.-2022AIMT00198

PATIENT

DRUGS (2)
  1. PALFORZIA [Suspect]
     Active Substance: PEANUT
     Indication: Food allergy
     Dosage: 240 MG, ONCE, LAST DOSE PRIOR TO EVENT
     Route: 048
     Dates: start: 20220310, end: 20220310
  2. PALFORZIA [Suspect]
     Active Substance: PEANUT
     Dosage: 200 MG, 1X/DAY
     Route: 048
     Dates: start: 20220311

REACTIONS (3)
  - Eczema [Recovered/Resolved]
  - Erythema [Recovered/Resolved]
  - Periorbital swelling [Recovered/Resolved]

NARRATIVE: CASE EVENT DATE: 20220310
